FAERS Safety Report 7352301-5 (Version None)
Quarter: 2011Q1

REPORT INFORMATION
  Report Type: 
  Country: None (occurrence: None)
  Receive Date: 20110304
  Receipt Date: 20110216
  Transmission Date: 20110831
  Serious: Yes (Other)
  Sender: FDA-Public Use
  Company Number: 025728

PATIENT
  Sex: Female
  Weight: 88 kg

DRUGS (25)
  1. DETROL LA [Concomitant]
  2. PANTOPRAZOLE [Concomitant]
  3. CIMZIA [Suspect]
     Indication: CROHN'S DISEASE
     Dosage: (400 MG 1X/MONTH, PFS ( PER FILLED SYRINGE) SUBCUTANEOUS
     Route: 058
     Dates: start: 20100505
  4. LIPITOR [Concomitant]
  5. ADVAIR DISKUS 100/50 [Concomitant]
  6. ENTOCORT EC [Concomitant]
  7. NITROGLYCERIN [Concomitant]
  8. EXTOCORT EC [Concomitant]
  9. NASACORT AQ [Concomitant]
  10. CALCIUM [Concomitant]
  11. TYLENOL /0020001/ [Concomitant]
  12. PROVENTIL HFA /00139501/ [Concomitant]
  13. NITROGYLCERIN [Concomitant]
  14. LEVBID [Concomitant]
  15. NORVASC [Concomitant]
  16. TOPROL-XL [Concomitant]
  17. CODIOVAN [Concomitant]
  18. ASPIRIN /0000271/ [Concomitant]
  19. ALLEGRA [Concomitant]
  20. LEXAPRO [Concomitant]
  21. PROMETHAZINE [Concomitant]
  22. LEVEMIR [Concomitant]
  23. LORAZEPAM [Concomitant]
  24. PROMETHAZINE [Concomitant]
  25. NOVOLOG [Concomitant]

REACTIONS (6)
  - ROSACEA [None]
  - DRUG HYPERSENSITIVITY [None]
  - FACIAL PAIN [None]
  - PAIN [None]
  - HYPERAESTHESIA [None]
  - ARTHRITIS [None]
